FAERS Safety Report 22277225 (Version 5)
Quarter: 2024Q1

REPORT INFORMATION
  Report Type: Other
  Country: US (occurrence: None)
  Receive Date: 20230503
  Receipt Date: 20240101
  Transmission Date: 20240410
  Serious: Yes (Hospitalization)
  Sender: FDA-Public Use
  Company Number: US-ROCHE-3340507

PATIENT
  Age: 61 Year
  Sex: Female
  Weight: 104.42 kg

DRUGS (1)
  1. OCREVUS [Suspect]
     Active Substance: OCRELIZUMAB
     Indication: Relapsing multiple sclerosis
     Dosage: ONGOING-YES; DATE OF SERVICE: 11/JUL/2022 (600 MG), 24/JUN/2021, 10/JAN/2022, 08/JUL/2021, 24/JUN/20
     Route: 042
     Dates: start: 20210624

REACTIONS (1)
  - Urinary tract infection [Recovered/Resolved]

NARRATIVE: CASE EVENT DATE: 20230101
